FAERS Safety Report 5339423-5 (Version None)
Quarter: 2007Q2

REPORT INFORMATION
  Report Type: 
  Country: None (occurrence: None)
  Receive Date: 20070404
  Receipt Date: 20060714
  Transmission Date: 20071010
  Serious: Yes (Other)
  Sender: FDA-Public Use
  Company Number: 2006087953

PATIENT
  Age: 38 Year
  Sex: Female
  Weight: 52.6173 kg

DRUGS (6)
  1. GEODON [Suspect]
     Indication: DEPRESSION
     Dosage: 80 MG (1 IN 1 D)
     Dates: start: 20060622
  2. ROZEREM [Concomitant]
  3. TRAZODONE HCL [Concomitant]
  4. WELLBUTRIN XL [Concomitant]
  5. MOTRIN [Concomitant]
  6. SUDAFED S.A. [Concomitant]

REACTIONS (1)
  - RASH [None]
